FAERS Safety Report 18026474 (Version 2)
Quarter: 2020Q4

REPORT INFORMATION
  Report Type: Spontaneous
  Country: US (occurrence: US)
  Receive Date: 20200715
  Receipt Date: 20201021
  Transmission Date: 20210113
  Serious: No
  Sender: FDA-Public Use
  Company Number: US-INSMED, INC.-US-INS-20-00994

PATIENT
  Sex: Female

DRUGS (1)
  1. ARIKAYCE [Suspect]
     Active Substance: AMIKACIN
     Indication: PRODUCT USED FOR UNKNOWN INDICATION
     Route: 055
     Dates: end: 2020

REACTIONS (5)
  - Cough [Recovering/Resolving]
  - Computerised tomogram [Unknown]
  - Dyspnoea [Not Recovered/Not Resolved]
  - Product use issue [Unknown]
  - Weight decreased [Recovering/Resolving]

NARRATIVE: CASE EVENT DATE: 2020
